FAERS Safety Report 6862206-1 (Version None)
Quarter: 2010Q3

REPORT INFORMATION
  Report Type: 
  Country: None (occurrence: None)
  Receive Date: 20100719
  Receipt Date: 20100707
  Transmission Date: 20110219
  Serious: Yes (Hospitalization)
  Sender: FDA-Public Use
  Company Number: 015216

PATIENT
  Age: 66 Year
  Sex: Female

DRUGS (7)
  1. KEPPRA [Suspect]
     Indication: CONVULSION
     Dosage: 1500 MG BID ORAL
     Route: 048
     Dates: start: 20100621
  2. NORVASC [Concomitant]
  3. DEPAKOTE [Concomitant]
  4. NEURONTIN [Concomitant]
  5. GABITRIL [Concomitant]
  6. ZOCOR [Concomitant]
  7. ZANTAC [Concomitant]

REACTIONS (2)
  - HYPOGLYCAEMIA [None]
  - MENTAL STATUS CHANGES [None]
